FAERS Safety Report 16817406 (Version 2)
Quarter: 2020Q1

REPORT INFORMATION
  Report Type: Spontaneous
  Country: US (occurrence: US)
  Receive Date: 20190917
  Receipt Date: 20200326
  Transmission Date: 20200409
  Serious: Yes (Other)
  Sender: FDA-Public Use
  Company Number: US-GILEAD-2019-0428040

PATIENT
  Age: 60 Year
  Sex: Female
  Weight: 90.7 kg

DRUGS (54)
  1. ATRIPLA [Suspect]
     Active Substance: EFAVIRENZ\EMTRICITABINE\TENOFOVIR DISOPROXIL FUMARATE
     Dosage: 600-200-300 MG
     Route: 048
     Dates: start: 201111, end: 201907
  2. DOCQLACE [Concomitant]
     Active Substance: DOCUSATE SODIUM
  3. ULTRAM [Concomitant]
     Active Substance: TRAMADOL HYDROCHLORIDE
  4. COLACE [Concomitant]
     Active Substance: DOCUSATE SODIUM
  5. PROVENTIL [Concomitant]
     Active Substance: ALBUTEROL
  6. LOVENOX [Concomitant]
     Active Substance: ENOXAPARIN SODIUM
  7. DULERA [Concomitant]
     Active Substance: FORMOTEROL FUMARATE DIHYDRATE\MOMETASONE FUROATE
  8. OSCALVIT D [Concomitant]
  9. CALCIUM CITRATE [Concomitant]
     Active Substance: CALCIUM CITRATE
  10. SENNA S [Concomitant]
     Active Substance: DOCUSATE SODIUM\SENNA LEAF
  11. METROGEL [Concomitant]
     Active Substance: METRONIDAZOLE
  12. VITAMIN C ACID [Concomitant]
     Active Substance: ASCORBIC ACID
  13. SPIRIVA [Concomitant]
     Active Substance: TIOTROPIUM BROMIDE MONOHYDRATE
  14. ZITHROMAX [Concomitant]
     Active Substance: AZITHROMYCIN DIHYDRATE
  15. LASIX [Concomitant]
     Active Substance: FUROSEMIDE
  16. TERCONAZOLE. [Concomitant]
     Active Substance: TERCONAZOLE
  17. VISTARIL [Concomitant]
     Active Substance: HYDROXYZINE PAMOATE
  18. TOFRANIL-PM [Concomitant]
     Active Substance: IMIPRAMINE PAMOATE
  19. PIROXICAM. [Concomitant]
     Active Substance: PIROXICAM
  20. PRINIVIL [Concomitant]
     Active Substance: LISINOPRIL
  21. HIBICLENS [Concomitant]
     Active Substance: CHLORHEXIDINE GLUCONATE
  22. HYDROCORTISONE 1% IN ABSORBASE [Concomitant]
     Active Substance: HYDROCORTISONE
  23. HYDROXYZINE [Concomitant]
     Active Substance: HYDROXYZINE HYDROCHLORIDE
  24. COMBIVENT RESPIMAT [Concomitant]
     Active Substance: ALBUTEROL SULFATE\IPRATROPIUM BROMIDE
  25. PROMETHAZINE DM [Concomitant]
     Active Substance: DEXTROMETHORPHAN HYDROBROMIDE\PROMETHAZINE HYDROCHLORIDE
  26. ROBITUSSIN COUGH + COLD [Concomitant]
  27. TYLENOL [Concomitant]
     Active Substance: ACETAMINOPHEN
  28. DUONEB [Concomitant]
     Active Substance: ALBUTEROL SULFATE\IPRATROPIUM BROMIDE
  29. LIDOCAINE. [Concomitant]
     Active Substance: LIDOCAINE
  30. DITROPAN [Concomitant]
     Active Substance: OXYBUTYNIN CHLORIDE
  31. NORVASC [Concomitant]
     Active Substance: AMLODIPINE BESYLATE
  32. ASPIRIN 81 [Concomitant]
     Active Substance: ASPIRIN
  33. VITAMIN D3 [Concomitant]
     Active Substance: CHOLECALCIFEROL
  34. VOLTAREN [DICLOFENAC] [Concomitant]
     Active Substance: DICLOFENAC SODIUM
  35. CYMBALTA [Concomitant]
     Active Substance: DULOXETINE HYDROCHLORIDE
  36. NEURONTIN [Concomitant]
     Active Substance: GABAPENTIN
  37. FLAGYL [Concomitant]
     Active Substance: METRONIDAZOLE\METRONIDAZOLE HYDROCHLORIDE
  38. SOLU-MEDROL [Concomitant]
     Active Substance: METHYLPREDNISOLONE SODIUM SUCCINATE
  39. APRESOLINE HYDROCHLORIDE [Concomitant]
     Active Substance: HYDRALAZINE HYDROCHLORIDE
  40. NAPROXEN. [Concomitant]
     Active Substance: NAPROXEN
  41. NICODERM CQ [Concomitant]
     Active Substance: NICOTINE
  42. ATRIPLA [Suspect]
     Active Substance: EFAVIRENZ\EMTRICITABINE\TENOFOVIR DISOPROXIL FUMARATE
     Indication: HIV INFECTION
     Dosage: 600-200-300 MG
     Route: 048
     Dates: start: 201009, end: 201010
  43. FOSAMAX [Concomitant]
     Active Substance: ALENDRONATE SODIUM
  44. AMBIEN [Concomitant]
     Active Substance: ZOLPIDEM TARTRATE
  45. MOBIC [Concomitant]
     Active Substance: MELOXICAM
  46. CEPACOL ANESTHETIC [Concomitant]
  47. DELTASONE [Concomitant]
     Active Substance: PREDNISONE
  48. HYDROCODONE BITARTRATE AND ACETAMINOPHEN [Concomitant]
     Active Substance: ACETAMINOPHEN\HYDROCODONE BITARTRATE
  49. SINGULAIR [Concomitant]
     Active Substance: MONTELUKAST SODIUM
  50. AFRIN [OXYMETAZOLINE] [Concomitant]
  51. ZOFRAN [Concomitant]
     Active Substance: ONDANSETRON HYDROCHLORIDE
  52. LOMOTIL [LOPERAMIDE HYDROCHLORIDE] [Concomitant]
  53. VENLAFAXINE [Concomitant]
     Active Substance: VENLAFAXINE HYDROCHLORIDE
  54. MAXZIDE [Concomitant]
     Active Substance: HYDROCHLOROTHIAZIDE\TRIAMTERENE

REACTIONS (11)
  - Osteoarthritis [Not Recovered/Not Resolved]
  - Bone density decreased [Unknown]
  - Pain [Unknown]
  - Economic problem [Unknown]
  - Anhedonia [Unknown]
  - Multiple fractures [Unknown]
  - Bone decalcification [Not Recovered/Not Resolved]
  - Anxiety [Unknown]
  - Emotional distress [Unknown]
  - Chronic kidney disease [Not Recovered/Not Resolved]
  - Osteoporosis [Not Recovered/Not Resolved]

NARRATIVE: CASE EVENT DATE: 20160107
